FAERS Safety Report 8374356-1 (Version None)
Quarter: 2012Q2

REPORT INFORMATION
  Report Type: 
  Country: None (occurrence: None)
  Receive Date: 20120521
  Receipt Date: 20120509
  Transmission Date: 20120825
  Serious: Yes (Other)
  Sender: FDA-Public Use
  Company Number: JP-ASTRAZENECA-2011SE45339

PATIENT
  Age: 17 Year
  Sex: Male

DRUGS (22)
  1. CARBOCAIN [Suspect]
     Indication: PAIN MANAGEMENT
     Dosage: 20MG/ML
     Route: 008
  2. ULTIVA [Suspect]
     Dosage: 0.2MG/HR
     Route: 042
     Dates: start: 20110620
  3. ROPIVACAINE HYDROCHLORIDE [Suspect]
     Indication: PAIN MANAGEMENT
     Dosage: 0.375%, 4 ML/HR CONTINUOUSLY
     Route: 008
     Dates: start: 20110620, end: 20110620
  4. XYLOCAINE [Concomitant]
     Indication: PAIN MANAGEMENT
     Route: 042
     Dates: start: 20110620, end: 20110620
  5. NI [Concomitant]
     Route: 042
     Dates: start: 20110620, end: 20110620
  6. ULTIVA [Suspect]
     Indication: ANAESTHESIA PROCEDURE
     Dosage: 0.5MG/HR
     Route: 042
     Dates: start: 20110620, end: 20110620
  7. POLARAMINE [Concomitant]
     Route: 042
     Dates: start: 20110620, end: 20110620
  8. CEFAZOLIN SODIUM [Suspect]
     Route: 042
     Dates: start: 20110620, end: 20110620
  9. HYDROCORTISONE SODIUM SUCCINATE [Concomitant]
  10. PROPOFOL [Suspect]
     Dosage: 10MG/ML, TOTAL DOSE OF WAS 2161 MG (BOLUS ADMINISTRATION 200MG, CONTINUOUS ADMINISTRATION 1061MG)
     Route: 042
     Dates: start: 20110620, end: 20110620
  11. FLURBIPROFEN [Suspect]
     Indication: PAIN MANAGEMENT
     Dosage: 50 MG
     Route: 065
     Dates: start: 20110620, end: 20110620
  12. SALINHES [Concomitant]
     Route: 042
     Dates: start: 20110620, end: 20110620
  13. ROCURONIUM BROMIDE [Concomitant]
     Indication: ANAESTHESIA PROCEDURE
     Route: 042
     Dates: start: 20110620, end: 20110620
  14. NEOPHYLLIN INJECTION [Concomitant]
     Route: 042
     Dates: start: 20110620, end: 20110620
  15. PROPOFOL [Suspect]
     Indication: GENERAL ANAESTHESIA
     Dosage: 10MG/ML, 1200MG/HR
     Route: 042
     Dates: start: 20110620
  16. FENTANYL-100 [Suspect]
     Indication: ANAESTHESIA PROCEDURE
     Route: 042
     Dates: start: 20110620, end: 20110620
  17. ATROPINE [Concomitant]
     Route: 042
     Dates: start: 20110620, end: 20110620
  18. PHYSIO 140 [Concomitant]
     Route: 042
     Dates: start: 20110620, end: 20110620
  19. PROPOFOL [Suspect]
     Dosage: 10MG/ML, 360MG/HR
     Route: 042
     Dates: start: 20110620
  20. PROPOFOL [Suspect]
     Dosage: 10MG/ML, WITH TARGET OF BLOOD CONCENTRATION OF 300MG/HR (AFTER 14:15) 280MG/HR (AFTER 15:15)
     Route: 042
     Dates: start: 20110620
  21. PROPOFOL [Suspect]
     Dosage: 10MG/ML, WITH TARGET OF BLOOD CONCENTRATION OF 350MG/HR (AFTER 15:35) AND 250 MG/HR (AFTER 16:45)
     Route: 042
     Dates: start: 20110620, end: 20110620
  22. RELAXIN [Concomitant]
     Indication: ANAESTHESIA PROCEDURE
     Route: 042
     Dates: start: 20110620, end: 20110620

REACTIONS (4)
  - GENERALISED ERYTHEMA [None]
  - AIRWAY PEAK PRESSURE INCREASED [None]
  - RASH [None]
  - MECHANICAL VENTILATION COMPLICATION [None]
